FAERS Safety Report 25094129 (Version 1)
Quarter: 2025Q1

REPORT INFORMATION
  Report Type: Report from Study
  Country: US (occurrence: US)
  Receive Date: 20250319
  Receipt Date: 20250319
  Transmission Date: 20250409
  Serious: Yes (Other)
  Sender: ALEXION PHARMACEUTICALS
  Company Number: US-AstraZeneca-CH-00826502A

PATIENT

DRUGS (1)
  1. OLAPARIB [Suspect]
     Active Substance: OLAPARIB
     Indication: Ovarian cancer
     Dosage: 200 MILLIGRAM, BID

REACTIONS (7)
  - Rectal haemorrhage [Unknown]
  - Rectal fissure [Unknown]
  - Procedural pain [Unknown]
  - Epistaxis [Unknown]
  - Laboratory test abnormal [Unknown]
  - Appetite disorder [Unknown]
  - Weight increased [Unknown]
